FAERS Safety Report 10944652 (Version 1)
Quarter: 2015Q1

REPORT INFORMATION
  Report Type: Spontaneous
  Country: US (occurrence: US)
  Receive Date: 20150323
  Receipt Date: 20150323
  Transmission Date: 20150721
  Serious: No
  Sender: FDA-Public Use
  Company Number: US-PFIZER INC-2010007783

PATIENT
  Sex: Female

DRUGS (1)
  1. ALPRAZOLAM. [Suspect]
     Active Substance: ALPRAZOLAM
     Dosage: UNK

REACTIONS (9)
  - Nausea [Recovered/Resolved]
  - Weight decreased [Unknown]
  - Decreased appetite [Unknown]
  - Gait disturbance [Recovered/Resolved]
  - Rash [Unknown]
  - Tinnitus [Recovered/Resolved]
  - Pruritus [Unknown]
  - Drug intolerance [Unknown]
  - Pain [Unknown]
